FAERS Safety Report 12411207 (Version 1)
Quarter: 2016Q2

REPORT INFORMATION
  Report Type: Spontaneous
  Country: US (occurrence: None)
  Receive Date: 20160526
  Receipt Date: 20160526
  Transmission Date: 20160815
  Serious: Yes (Hospitalization, Other)
  Sender: FDA-Public Use
  Company Number: None

PATIENT
  Age: 68 Year
  Sex: Female
  Weight: 70.31 kg

DRUGS (9)
  1. LOSARTAN TAKE 50 MG 1 TAB A DAY [Suspect]
     Active Substance: LOSARTAN
     Indication: HEADACHE
     Dosage: 1 PILL DAILY 1 DAILY 1 A DAY
     Dates: start: 20160425, end: 20160501
  2. VIT MULTI [Concomitant]
  3. CRANBERRY PILLS [Concomitant]
  4. LOSARTAN TAKE 50 MG 1 TAB A DAY [Suspect]
     Active Substance: LOSARTAN
     Indication: BACK PAIN
     Dosage: 1 PILL DAILY 1 DAILY 1 A DAY
     Dates: start: 20160425, end: 20160501
  5. LOSARTAN TAKE 50 MG 1 TAB A DAY [Suspect]
     Active Substance: LOSARTAN
     Indication: COUGH
     Dosage: 1 PILL DAILY 1 DAILY 1 A DAY
     Dates: start: 20160425, end: 20160501
  6. LOSARTAN TAKE 50 MG 1 TAB A DAY [Suspect]
     Active Substance: LOSARTAN
     Indication: RENAL DISORDER
     Dosage: 1 PILL DAILY 1 DAILY 1 A DAY
     Dates: start: 20160425, end: 20160501
  7. LOSARTAN TAKE 50 MG 1 TAB A DAY [Suspect]
     Active Substance: LOSARTAN
     Indication: HYPERTENSION
     Dosage: 1 PILL DAILY 1 DAILY 1 A DAY
     Dates: start: 20160425, end: 20160501
  8. HIGH BLOOD PRESSURE MED [Concomitant]
  9. LOSARTAN TAKE 50 MG 1 TAB A DAY [Suspect]
     Active Substance: LOSARTAN
     Indication: PRODUCT USED FOR UNKNOWN INDICATION
     Dosage: 1 PILL DAILY 1 DAILY 1 A DAY
     Dates: start: 20160425, end: 20160501

REACTIONS (4)
  - Dizziness [None]
  - Cough [None]
  - Headache [None]
  - Blood pressure increased [None]

NARRATIVE: CASE EVENT DATE: 20160501
